FAERS Safety Report 19728189 (Version 1)
Quarter: 2021Q3

REPORT INFORMATION
  Report Type: Spontaneous
  Country: FR (occurrence: FR)
  Receive Date: 20210820
  Receipt Date: 20210820
  Transmission Date: 20211014
  Serious: Yes (Other)
  Sender: FDA-Public Use
  Company Number: FR-GLAXOSMITHKLINE-FR2021173982

PATIENT
  Age: 65 Year
  Sex: Male

DRUGS (5)
  1. SALBUTAMOL [Suspect]
     Active Substance: ALBUTEROL
     Indication: DYSPNOEA
     Dosage: 15 MG
     Route: 055
     Dates: start: 20210520, end: 20210527
  2. ESOMEPRAZOLE. [Suspect]
     Active Substance: ESOMEPRAZOLE MAGNESIUM
     Indication: OESOPHAGEAL VARICES HAEMORRHAGE
     Dosage: 40 MG
     Route: 042
     Dates: start: 20210520, end: 20210528
  3. METHYLPREDNISOLONE. [Suspect]
     Active Substance: METHYLPREDNISOLONE
     Indication: LARYNGEAL DYSPNOEA
     Dosage: 120 MG
     Route: 042
     Dates: start: 20210520, end: 20210527
  4. ADRENALINE [Suspect]
     Active Substance: EPINEPHRINE
     Indication: VASOPRESSIVE THERAPY
     Dosage: 3 MG
     Route: 007
     Dates: start: 20210520, end: 20210527
  5. IPRATROPIUM BROMID [Suspect]
     Active Substance: IPRATROPIUM BROMIDE
     Indication: DYSPNOEA
     Dosage: 15 MG
     Route: 055
     Dates: start: 20210520, end: 20210529

REACTIONS (1)
  - Thrombocytopenia [Recovered/Resolved]

NARRATIVE: CASE EVENT DATE: 20210521
